FAERS Safety Report 8430598-8 (Version None)
Quarter: 2012Q2

REPORT INFORMATION
  Report Type: 
  Country: None (occurrence: None)
  Receive Date: 20120612
  Receipt Date: 20120608
  Transmission Date: 20120825
  Serious: No
  Sender: FDA-Public Use
  Company Number: US-TEVA-342492USA

PATIENT
  Sex: Female
  Weight: 72.64 kg

DRUGS (4)
  1. CIPROFLOXACIN [Concomitant]
     Indication: URINARY TRACT INFECTION
  2. SYNTHROID [Concomitant]
     Indication: HYPOTHYROIDISM
  3. IMPLANON CONTRACEPTIVE ROD INSERT [Concomitant]
     Indication: CONTRACEPTION
     Dates: start: 20120101
  4. PLAN B ONE-STEP [Suspect]
     Indication: POST COITAL CONTRACEPTION
     Dosage: 1.5 MILLIGRAM;
     Route: 048
     Dates: start: 20120608, end: 20120608

REACTIONS (2)
  - MALAISE [None]
  - DIZZINESS [None]
